FAERS Safety Report 11004874 (Version 2)
Quarter: 2015Q2

REPORT INFORMATION
  Report Type: Report from Study
  Country: AU (occurrence: AU)
  Receive Date: 20150409
  Receipt Date: 20150518
  Transmission Date: 20150821
  Serious: Yes (Hospitalization)
  Sender: FDA-Public Use
  Company Number: PHHY2015AU040393

PATIENT
  Age: 31 Year
  Sex: Male

DRUGS (5)
  1. THIAMINE [Concomitant]
     Active Substance: THIAMINE
     Indication: ALCOHOL ABUSE
     Dosage: 100 MG, QD
     Route: 048
  2. PALIPERIDONE [Concomitant]
     Active Substance: PALIPERIDONE
     Indication: SCHIZOPHRENIA
     Dosage: 100 MG, EVERY 3 WEEKS
     Route: 030
  3. SERTRALINE [Concomitant]
     Active Substance: SERTRALINE HYDROCHLORIDE
     Indication: DEPRESSION
     Dosage: 200 MG, QD
     Route: 048
  4. CLOZARIL [Suspect]
     Active Substance: CLOZAPINE
     Indication: SCHIZOPHRENIA
     Dosage: 400 MG, QD
     Route: 048
     Dates: start: 20130724
  5. SERTRALINE [Concomitant]
     Active Substance: SERTRALINE HYDROCHLORIDE
     Indication: AFFECTIVE DISORDER

REACTIONS (4)
  - Psychotic disorder [Recovering/Resolving]
  - Anosognosia [Recovering/Resolving]
  - Confusional state [Recovering/Resolving]
  - Malaise [Unknown]

NARRATIVE: CASE EVENT DATE: 20150402
